FAERS Safety Report 7089225-7 (Version None)
Quarter: 2010Q4

REPORT INFORMATION
  Report Type: 
  Country: None (occurrence: None)
  Receive Date: 20101029
  Receipt Date: 20101015
  Transmission Date: 20110411
  Serious: Yes (Other)
  Sender: FDA-Public Use
  Company Number: 010416

PATIENT
  Sex: Female
  Weight: 87 kg

DRUGS (6)
  1. CERTOLIZUMAB PEGOL (CERTOLIZUMAB PEGOL) [Suspect]
     Indication: RHEUMATOID ARTHRITIS
     Dosage: (400 MG 1X/2 WEEKS, CDP870-027; NBR OF DOSES: 26 SUBCUTANEOUS), (400 MG 1X/2 WEEKS SUBCUTANEOUS)
     Route: 058
     Dates: start: 20050825, end: 20060810
  2. CERTOLIZUMAB PEGOL (CERTOLIZUMAB PEGOL) [Suspect]
     Indication: RHEUMATOID ARTHRITIS
     Dosage: (400 MG 1X/2 WEEKS, CDP870-027; NBR OF DOSES: 26 SUBCUTANEOUS), (400 MG 1X/2 WEEKS SUBCUTANEOUS)
     Route: 058
     Dates: start: 20060828, end: 20100331
  3. METHOTREXATE [Concomitant]
  4. FOLIC ACID [Concomitant]
  5. MELOXICAM [Concomitant]
  6. DICLOFENAC SODIUM [Concomitant]

REACTIONS (1)
  - LATENT TUBERCULOSIS [None]
